FAERS Safety Report 17641713 (Version 1)
Quarter: 2020Q2

REPORT INFORMATION
  Report Type: Spontaneous
  Country: CN (occurrence: CN)
  Receive Date: 20200408
  Receipt Date: 20200408
  Transmission Date: 20200713
  Serious: Yes (Hospitalization)
  Sender: FDA-Public Use
  Company Number: CN-ASTRAZENECA-2020SE47021

PATIENT
  Age: 47 Year
  Sex: Male
  Weight: 72 kg

DRUGS (3)
  1. AMOXICILLIN. [Suspect]
     Active Substance: AMOXICILLIN
     Indication: TOOTHACHE
     Route: 048
     Dates: start: 20200315, end: 20200317
  2. IBUPROFEN. [Suspect]
     Active Substance: IBUPROFEN
     Indication: TOOTHACHE
     Route: 048
     Dates: start: 20200315, end: 20200317
  3. DAPAGLIFLOZIN. [Suspect]
     Active Substance: DAPAGLIFLOZIN
     Route: 048
     Dates: start: 20190531, end: 20200331

REACTIONS (2)
  - Fixed eruption [Not Recovered/Not Resolved]
  - Toothache [Unknown]

NARRATIVE: CASE EVENT DATE: 20200317
